FAERS Safety Report 9985533 (Version 2)
Quarter: 2014Q1

REPORT INFORMATION
  Report Type: Spontaneous
  Country: FR (occurrence: FR)
  Receive Date: 20140307
  Receipt Date: 20140325
  Transmission Date: 20141002
  Serious: Yes (Other)
  Sender: FDA-Public Use
  Company Number: FR-ASTRAZENECA-2014SE15780

PATIENT
  Age: 1062 Month
  Sex: Female

DRUGS (4)
  1. TENORMINE [Suspect]
     Indication: HYPERTENSION
     Route: 065
     Dates: start: 201402
  2. TENORMINE [Interacting]
     Indication: EXTRASYSTOLES
     Route: 065
     Dates: start: 201402
  3. APROVEL [Interacting]
     Route: 065
  4. LASILIX [Concomitant]

REACTIONS (5)
  - Drug interaction [Not Recovered/Not Resolved]
  - Hypertension [Not Recovered/Not Resolved]
  - Middle insomnia [Not Recovered/Not Resolved]
  - Tinnitus [Not Recovered/Not Resolved]
  - Drug ineffective [Not Recovered/Not Resolved]
